FAERS Safety Report 5409269-8 (Version None)
Quarter: 2007Q3

REPORT INFORMATION
  Report Type: 
  Country: None (occurrence: None)
  Receive Date: 20070809
  Receipt Date: 20070806
  Transmission Date: 20080115
  Serious: Yes (Other)
  Sender: FDA-Public Use
  Company Number: PHNU2007DE02747

PATIENT
  Age: 49 Year
  Sex: Female

DRUGS (3)
  1. NOVALGIN /SWE/ [Concomitant]
  2. IBUPROFEN [Concomitant]
  3. BRISERIN-N MITE [Suspect]
     Indication: HYPERTENSION
     Dosage: 1 DF, QD
     Dates: start: 20050101, end: 20070701

REACTIONS (3)
  - BLOOD PRESSURE FLUCTUATION [None]
  - BORRELIA BURGDORFERI SEROLOGY POSITIVE [None]
  - MUSCULOSKELETAL STIFFNESS [None]
